FAERS Safety Report 17444505 (Version 1)
Quarter: 2020Q1

REPORT INFORMATION
  Report Type: Spontaneous
  Country: FR (occurrence: FR)
  Receive Date: 20200221
  Receipt Date: 20200221
  Transmission Date: 20200409
  Serious: Yes (Death, Hospitalization)
  Sender: FDA-Public Use
  Company Number: FR-JNJFOC-20200224598

PATIENT
  Age: 77 Year
  Sex: Female
  Weight: 88.5 kg

DRUGS (9)
  1. ELISOR [Concomitant]
     Active Substance: PRAVASTATIN SODIUM
     Dosage: UNK
  2. RIVAROXABAN [Suspect]
     Active Substance: RIVAROXABAN
     Indication: ATRIAL FIBRILLATION
     Dosage: 15 MG
     Route: 048
     Dates: start: 201909
  3. ZYMAD [Concomitant]
     Active Substance: CHOLECALCIFEROL
     Dosage: 1 AMPOULE PER MONTH
  4. ZANEXTRA [Concomitant]
     Active Substance: ENALAPRIL MALEATE\LERCANIDIPINE HYDROCHLORIDE
     Dosage: UNK
  5. INSPRA [Concomitant]
     Active Substance: EPLERENONE
  6. LYSANXIA [Concomitant]
     Active Substance: PRAZEPAM
     Dosage: UNK
  7. KARDEGIC [Concomitant]
     Active Substance: ASPIRIN DL-LYSINE
     Indication: CORONARY ARTERY DISEASE
     Dosage: LOW DOSE
  8. KERLONE [Concomitant]
     Active Substance: BETAXOLOL HYDROCHLORIDE
     Dosage: UNK
  9. ESOMEPRAZOLE. [Concomitant]
     Active Substance: ESOMEPRAZOLE MAGNESIUM
     Dosage: 1 IN THE EVENING

REACTIONS (2)
  - Haemorrhagic stroke [Fatal]
  - Coma [Fatal]

NARRATIVE: CASE EVENT DATE: 202001
